FAERS Safety Report 18112629 (Version 1)
Quarter: 2020Q3

REPORT INFORMATION
  Report Type: Spontaneous
  Country: US (occurrence: US)
  Receive Date: 20200804
  Receipt Date: 20200804
  Transmission Date: 20201103
  Serious: No
  Sender: FDA-Public Use
  Company Number: None

PATIENT
  Age: 42 Year
  Sex: Female

DRUGS (1)
  1. REMICADE [Suspect]
     Active Substance: INFLIXIMAB
     Indication: COLITIS ULCERATIVE
     Dosage: ?          OTHER FREQUENCY:OTHER;OTHER ROUTE:OTHER?
     Dates: start: 201910, end: 202006

REACTIONS (4)
  - Dehydration [None]
  - Drug ineffective [None]
  - Colitis ulcerative [None]
  - Therapy change [None]

NARRATIVE: CASE EVENT DATE: 20200804
